FAERS Safety Report 22660479 (Version 1)
Quarter: 2023Q2

REPORT INFORMATION
  Report Type: Other
  Country: None (occurrence: JP)
  Receive Date: 20230630
  Receipt Date: 20230630
  Transmission Date: 20230722
  Serious: Yes (Life-Threatening)
  Sender: FDA-Public Use
  Company Number: JP-B.Braun Medical Inc.-2143289

PATIENT
  Sex: Male

DRUGS (6)
  1. SODIUM CHLORIDE FOR IRRIGATION [Suspect]
     Active Substance: SODIUM CHLORIDE
     Indication: Thoracic cavity lavage
     Route: 038
  2. LANSOPRAZOLE [Concomitant]
     Active Substance: LANSOPRAZOLE
  3. RISPERIDONE [Concomitant]
     Active Substance: RISPERIDONE
  4. OLANZAPINE [Concomitant]
     Active Substance: OLANZAPINE
  5. UROKINASE [Suspect]
     Active Substance: UROKINASE
  6. AMPICILLIN SODIUM\SULBACTAM SODIUM [Concomitant]
     Active Substance: AMPICILLIN SODIUM\SULBACTAM SODIUM

REACTIONS (1)
  - Cerebral gas embolism [Recovered/Resolved]
